FAERS Safety Report 14940568 (Version 1)
Quarter: 2018Q2

REPORT INFORMATION
  Report Type: Spontaneous
  Country: FR (occurrence: FR)
  Receive Date: 20180525
  Receipt Date: 20180525
  Transmission Date: 20180711
  Serious: Yes (Other)
  Sender: FDA-Public Use
  Company Number: FR-PFIZER INC-2018210610

PATIENT
  Age: 15 Year
  Sex: Female
  Weight: 40 kg

DRUGS (2)
  1. SERTRALINE HCL [Suspect]
     Active Substance: SERTRALINE HYDROCHLORIDE
     Dosage: 50 MG, 1X/DAY
     Route: 048
     Dates: start: 20180217, end: 201803
  2. TERCIAN /00759301/ [Interacting]
     Active Substance: CYAMEMAZINE
     Indication: ANOREXIA NERVOSA
     Dosage: 25 GTT, 1X/DAY
     Route: 048
     Dates: start: 20180125

REACTIONS (3)
  - Normochromic normocytic anaemia [Recovered/Resolved]
  - Drug interaction [Unknown]
  - Epistaxis [Recovered/Resolved]

NARRATIVE: CASE EVENT DATE: 20180207
